FAERS Safety Report 6183130-6 (Version None)
Quarter: 2009Q2

REPORT INFORMATION
  Report Type: 
  Country: None (occurrence: None)
  Receive Date: 20090507
  Receipt Date: 20090430
  Transmission Date: 20091009
  Serious: Yes (Hospitalization)
  Sender: FDA-Public Use
  Company Number: AU-B.I. PHARMACEUTICALS,INC./RIDGEFIELD-2009-AU-00176AU

PATIENT
  Sex: Female
  Weight: 50 kg

DRUGS (3)
  1. MOBIC [Suspect]
     Indication: RHEUMATOID ARTHRITIS
     Dosage: 7.5MG
     Route: 048
     Dates: start: 20080801, end: 20081027
  2. ASCORBIC ACID [Concomitant]
     Route: 048
     Dates: start: 20080101
  3. PREDNISOLONE [Concomitant]
     Route: 048
     Dates: start: 20080101

REACTIONS (2)
  - ANAEMIA [None]
  - IRON DEFICIENCY [None]
